FAERS Safety Report 17144787 (Version 1)
Quarter: 2019Q4

REPORT INFORMATION
  Report Type: Spontaneous
  Country: FR (occurrence: FR)
  Receive Date: 20191212
  Receipt Date: 20191212
  Transmission Date: 20200122
  Serious: Yes (Other)
  Sender: FDA-Public Use
  Company Number: FR-MYLANLABS-2019M1120662

PATIENT
  Age: 45 Year
  Sex: Male
  Weight: 74 kg

DRUGS (1)
  1. TRAMADOL MYLAN 50 MG, G?LULE [Suspect]
     Active Substance: TRAMADOL
     Indication: FRACTURE PAIN
     Dosage: 3 DOSAGE FORM, QD
     Route: 048
     Dates: start: 20191003, end: 20191006

REACTIONS (7)
  - Erectile dysfunction [Not Recovered/Not Resolved]
  - Logorrhoea [Not Recovered/Not Resolved]
  - Emotional disorder [Not Recovered/Not Resolved]
  - Euphoric mood [Not Recovered/Not Resolved]
  - Loss of libido [Not Recovered/Not Resolved]
  - Abdominal pain [Not Recovered/Not Resolved]
  - Decreased appetite [Not Recovered/Not Resolved]

NARRATIVE: CASE EVENT DATE: 20191003
